FAERS Safety Report 21008081 (Version 2)
Quarter: 2023Q1

REPORT INFORMATION
  Report Type: Report from Study
  Country: US (occurrence: US)
  Receive Date: 20220627
  Receipt Date: 20230130
  Transmission Date: 20230417
  Serious: Yes (Hospitalization, Other)
  Sender: FDA-Public Use
  Company Number: US-UCBSA-2022034715

PATIENT
  Age: 89 Year
  Sex: Female

DRUGS (8)
  1. ROTIGOTINE [Suspect]
     Active Substance: ROTIGOTINE
     Indication: Parkinson^s disease
     Dosage: 6 MILLIGRAM, ONCE DAILY (QD)
     Route: 062
  2. ROTIGOTINE [Suspect]
     Active Substance: ROTIGOTINE
     Indication: Restless legs syndrome
  3. ASPIRIN [Concomitant]
     Active Substance: ASPIRIN
     Indication: Product used for unknown indication
  4. HYDROCHLOROTHIAZIDE [Concomitant]
     Active Substance: HYDROCHLOROTHIAZIDE
     Indication: Product used for unknown indication
  5. VITAMIN D NOS [Concomitant]
     Active Substance: VITAMIN D NOS
     Indication: Product used for unknown indication
  6. LEVOTHYROXINE [Concomitant]
     Active Substance: LEVOTHYROXINE
     Indication: Product used for unknown indication
  7. VITAMIN B12 [Concomitant]
     Active Substance: CYANOCOBALAMIN
     Indication: Product used for unknown indication
  8. LORAZEPAM [Concomitant]
     Active Substance: LORAZEPAM
     Indication: Product used for unknown indication

REACTIONS (4)
  - Lower limb fracture [Not Recovered/Not Resolved]
  - Fracture treatment [Not Recovered/Not Resolved]
  - Overdose [Unknown]
  - Product use issue [Unknown]

NARRATIVE: CASE EVENT DATE: 20220501
